FAERS Safety Report 5872913-5 (Version None)
Quarter: 2008Q3

REPORT INFORMATION
  Report Type: 
  Country: None (occurrence: None)
  Receive Date: 20080903
  Receipt Date: 20080819
  Transmission Date: 20090109
  Serious: Yes (Death, Hospitalization)
  Sender: FDA-Public Use
  Company Number: 2008S1015112

PATIENT
  Sex: Female

DRUGS (2)
  1. PHENYTOIN SODIUM [Suspect]
     Dates: start: 20060601, end: 20060101
  2. FOSPHENYTOIN [Suspect]

REACTIONS (1)
  - STEVENS-JOHNSON SYNDROME [None]
